FAERS Safety Report 4313675-2 (Version None)
Quarter: 2004Q1

REPORT INFORMATION
  Report Type: 
  Country: None (occurrence: None)
  Receive Date: 20040305
  Receipt Date: 20040301
  Transmission Date: 20041129
  Serious: Yes (Other)
  Sender: FDA-Public Use
  Company Number: MP04-019

PATIENT
  Sex: Female

DRUGS (2)
  1. BACTRIM [Suspect]
     Indication: CYSTITIS
  2. ACCUTANE [Concomitant]

REACTIONS (8)
  - BENIGN INTRACRANIAL HYPERTENSION [None]
  - DEAFNESS [None]
  - DRUG INTERACTION [None]
  - INCOHERENT [None]
  - LOSS OF CONSCIOUSNESS [None]
  - MENINGITIS [None]
  - TINNITUS [None]
  - VOMITING [None]
